FAERS Safety Report 19925321 (Version 1)
Quarter: 2021Q4

REPORT INFORMATION
  Report Type: Spontaneous
  Country: US (occurrence: US)
  Receive Date: 20211006
  Receipt Date: 20211006
  Transmission Date: 20220303
  Serious: No
  Sender: FDA-Public Use
  Company Number: US-GLENMARK PHARMACEUTICALS-2021GMK067290

PATIENT

DRUGS (1)
  1. GABAPENTIN [Suspect]
     Active Substance: GABAPENTIN
     Indication: Arthralgia
     Dosage: 600 MILLIGRAM, TID (1 TABLET THRICE A DAY)
     Route: 048

REACTIONS (3)
  - Product use complaint [Unknown]
  - Product size issue [Unknown]
  - Drug ineffective for unapproved indication [Unknown]
